FAERS Safety Report 21696161 (Version 1)
Quarter: 2022Q4

REPORT INFORMATION
  Report Type: Spontaneous
  Country: US (occurrence: None)
  Receive Date: 20221207
  Receipt Date: 20221207
  Transmission Date: 20230113
  Serious: Yes (Hospitalization)
  Sender: FDA-Public Use
  Company Number: None

PATIENT
  Age: 91 Year
  Sex: Female
  Weight: 81.6 kg

DRUGS (2)
  1. FLUOROURACIL [Suspect]
     Active Substance: FLUOROURACIL
     Dates: end: 20221017
  2. MITOMYCIN C [Suspect]
     Active Substance: MITOMYCIN
     Dates: end: 20221017

REACTIONS (8)
  - Fall [None]
  - Lethargy [None]
  - Sepsis [None]
  - Urinary tract infection [None]
  - Acute kidney injury [None]
  - Respiratory failure [None]
  - Hypertension [None]
  - Metabolic encephalopathy [None]

NARRATIVE: CASE EVENT DATE: 20221120
